FAERS Safety Report 8784253 (Version 1)
Quarter: 2012Q4

REPORT INFORMATION
  Report Type: 
  Country: CN (occurrence: CN)
  Receive Date: 20120913
  Receipt Date: 20120913
  Transmission Date: 20130627
  Serious: Yes (Hospitalization)
  Sender: FDA-Public Use
  Company Number: CN-ABBOTT-12P-035-0977856-00

PATIENT
  Age: 60 Year
  Sex: Male

DRUGS (1)
  1. VALPROATE SODIUM [Suspect]
     Indication: MANIA
     Dosage: 0.5 grams daily
     Route: 048
     Dates: start: 20110223, end: 20110321

REACTIONS (1)
  - Hepatocellular injury [Recovering/Resolving]
